FAERS Safety Report 21765811 (Version 1)
Quarter: 2022Q4

REPORT INFORMATION
  Report Type: Spontaneous
  Country: US (occurrence: None)
  Receive Date: 20221221
  Receipt Date: 20221221
  Transmission Date: 20230113
  Serious: No
  Sender: FDA-Public Use
  Company Number: None

PATIENT
  Age: 28 Year
  Sex: Female

DRUGS (1)
  1. HYDROXYPROGESTERONE CAPROATE [Suspect]
     Active Substance: HYDROXYPROGESTERONE CAPROATE
     Indication: High risk pregnancy
     Route: 030

REACTIONS (3)
  - Premature labour [None]
  - Abortion spontaneous [None]
  - Maternal exposure during pregnancy [None]

NARRATIVE: CASE EVENT DATE: 20221220
